FAERS Safety Report 8236118-5 (Version None)
Quarter: 2012Q1

REPORT INFORMATION
  Report Type: 
  Country: None (occurrence: None)
  Receive Date: 20120327
  Receipt Date: 20120321
  Transmission Date: 20120608
  Serious: No
  Sender: FDA-Public Use
  Company Number: US-BIOGENIDEC-2011BI004908

PATIENT
  Sex: Female

DRUGS (1)
  1. TYSABRI [Suspect]
     Indication: MULTIPLE SCLEROSIS
     Route: 042
     Dates: start: 20110111

REACTIONS (15)
  - ABDOMINAL PAIN UPPER [None]
  - CONTUSION [None]
  - ALOPECIA [None]
  - ARTHRALGIA [None]
  - FEELING COLD [None]
  - CREPITATIONS [None]
  - PAIN IN EXTREMITY [None]
  - DERMATITIS [None]
  - CHILLS [None]
  - WEIGHT INCREASED [None]
  - DRY MOUTH [None]
  - DRY SKIN [None]
  - HEADACHE [None]
  - FATIGUE [None]
  - MEMORY IMPAIRMENT [None]
